FAERS Safety Report 22661683 (Version 1)
Quarter: 2023Q2

REPORT INFORMATION
  Report Type: Spontaneous
  Country: US (occurrence: US)
  Receive Date: 20230630
  Receipt Date: 20230630
  Transmission Date: 20230721
  Serious: No
  Sender: FDA-Public Use
  Company Number: US-JAZZ PHARMACEUTICALS-2023-US-007687

PATIENT
  Age: 21 Year
  Sex: Male

DRUGS (1)
  1. EPIDIOLEX [Suspect]
     Active Substance: CANNABIDIOL
     Indication: Seizure
     Dosage: 4 MILLILITER, BID
     Route: 048
     Dates: start: 20220723

REACTIONS (2)
  - Abnormal behaviour [Unknown]
  - Anger [Unknown]

NARRATIVE: CASE EVENT DATE: 20230330
